FAERS Safety Report 8457632-3 (Version None)
Quarter: 2012Q2

REPORT INFORMATION
  Report Type: 
  Country: None (occurrence: None)
  Receive Date: 20120622
  Receipt Date: 20120612
  Transmission Date: 20120825
  Serious: Yes (Other)
  Sender: FDA-Public Use
  Company Number: FR-BRISTOL-MYERS SQUIBB COMPANY-16687949

PATIENT
  Age: 37 Year
  Sex: Female

DRUGS (5)
  1. ATRIPLA [Suspect]
     Indication: HIV INFECTION
     Route: 048
     Dates: start: 20100928
  2. TRUVADA [Suspect]
     Indication: HIV INFECTION
     Route: 048
     Dates: start: 20090106, end: 20100928
  3. REYATAZ [Suspect]
     Indication: HIV INFECTION
     Route: 048
     Dates: start: 20090106, end: 20100928
  4. EFAVIRENZ [Suspect]
     Dosage: AUG-2005 TO UNKNOWN DATE, FROM AUG-2007 TO UNKNOWN DATE AND FROM DEC-2008.
     Dates: start: 20080801
  5. NORVIR [Suspect]
     Indication: HIV INFECTION
     Route: 048
     Dates: start: 20100928

REACTIONS (1)
  - AUTOIMMUNE HEPATITIS [None]
